FAERS Safety Report 16429516 (Version 3)
Quarter: 2019Q3

REPORT INFORMATION
  Report Type: Spontaneous
  Country: DE (occurrence: DE)
  Receive Date: 20190614
  Receipt Date: 20190729
  Transmission Date: 20191004
  Serious: Yes (Hospitalization, Other)
  Sender: FDA-Public Use
  Company Number: DE-009507513-1906DEU002952

PATIENT
  Age: 35 Year
  Sex: Female

DRUGS (5)
  1. GONADOTROPIN, CHORIONIC [Suspect]
     Active Substance: CHORIOGONADOTROPIN ALFA
     Indication: OVULATION INDUCTION
     Dosage: 5000 UNK, ONCE/SINGLE
     Route: 058
     Dates: end: 20190511
  2. PUREGON (FOLLITROPIN BETA) [Suspect]
     Active Substance: FOLLITROPIN
     Indication: ASSISTED REPRODUCTIVE TECHNOLOGY
     Dosage: 125 UNK, 1 TIME DAILY
     Route: 058
     Dates: start: 20190430, end: 20190511
  3. ORGALUTRAN [Suspect]
     Active Substance: GANIRELIX ACETATE
     Indication: THERAPEUTIC OVARIAN SUPPRESSION
     Dosage: 0.25 UNK, 1 TIME DAILY
     Route: 058
     Dates: start: 20190507, end: 20190511
  4. PROGESTERONE. [Suspect]
     Active Substance: PROGESTERONE
     Indication: ASSISTED REPRODUCTIVE TECHNOLOGY
     Dosage: 200 MG, 3 TIMES DAILY
     Route: 067
     Dates: start: 20190513
  5. LUVERIS [Suspect]
     Active Substance: LUTROPIN ALFA
     Indication: ASSISTED REPRODUCTIVE TECHNOLOGY
     Dosage: 75 UNK, 1 TIME DAILY
     Route: 058
     Dates: start: 20190506, end: 20190511

REACTIONS (1)
  - Ovarian hyperstimulation syndrome [Recovered/Resolved]

NARRATIVE: CASE EVENT DATE: 20190526
